FAERS Safety Report 13072744 (Version 1)
Quarter: 2016Q4

REPORT INFORMATION
  Report Type: Spontaneous
  Country: US (occurrence: US)
  Receive Date: 20161229
  Receipt Date: 20161229
  Transmission Date: 20170207
  Serious: Yes (Other)
  Sender: FDA-Public Use
  Company Number: US-SA-2016SA030742

PATIENT
  Age: 57 Year
  Sex: Male

DRUGS (3)
  1. JEVTANA [Concomitant]
     Active Substance: CABAZITAXEL
     Route: 065
  2. TAXOTERE [Suspect]
     Active Substance: DOCETAXEL
     Route: 065
  3. XTANDI [Concomitant]
     Active Substance: ENZALUTAMIDE
     Indication: PROSTATE CANCER
     Route: 048

REACTIONS (1)
  - Disease progression [Unknown]
